FAERS Safety Report 6964730-X (Version None)
Quarter: 2010Q3

REPORT INFORMATION
  Report Type: 
  Country: None (occurrence: None)
  Receive Date: 20100903
  Receipt Date: 20100824
  Transmission Date: 20110219
  Serious: Yes (Other)
  Sender: FDA-Public Use
  Company Number: CA-JNJFOC-20100808509

PATIENT
  Sex: Female
  Weight: 108 kg

DRUGS (8)
  1. REMICADE [Suspect]
     Indication: CROHN'S DISEASE
     Route: 042
  2. REMICADE [Suspect]
     Route: 042
  3. PRILOSEC [Concomitant]
  4. IMURAN [Concomitant]
  5. PLAQUENIL [Concomitant]
  6. LANTUS [Concomitant]
     Dosage: 80 UNITS IN AM.
  7. HUMALOG [Concomitant]
     Dosage: 20 UNITS PRIOR TO EACH MEAL
  8. RELPAX [Concomitant]

REACTIONS (1)
  - ENDOMETRIOSIS [None]
